FAERS Safety Report 17434151 (Version 1)
Quarter: 2020Q1

REPORT INFORMATION
  Report Type: Spontaneous
  Country: DE (occurrence: DE)
  Receive Date: 20200219
  Receipt Date: 20200219
  Transmission Date: 20200409
  Serious: Yes (Other)
  Sender: FDA-Public Use
  Company Number: DE-GLAXOSMITHKLINE-DE2020025861

PATIENT
  Age: 18 Month
  Sex: Male
  Weight: 14 kg

DRUGS (1)
  1. SALBUTAMOL [Suspect]
     Active Substance: ALBUTEROL
     Indication: BRONCHITIS
     Dosage: 3X2 TROPFEN
     Route: 048

REACTIONS (4)
  - Hallucination, visual [Recovered/Resolved]
  - Screaming [Recovered/Resolved]
  - Hallucination, visual [Recovered/Resolved]
  - Screaming [Recovered/Resolved]

NARRATIVE: CASE EVENT DATE: 201903
